FAERS Safety Report 11228579 (Version 1)
Quarter: 2015Q2

REPORT INFORMATION
  Report Type: Spontaneous
  Country: US (occurrence: US)
  Receive Date: 20150630
  Receipt Date: 20150630
  Transmission Date: 20150821
  Serious: Yes (Other)
  Sender: FDA-Public Use
  Company Number: US-MEDA-2014090045

PATIENT
  Age: 41 Year
  Sex: Female
  Weight: 84 kg

DRUGS (11)
  1. CARISOPRODOL. [Suspect]
     Active Substance: CARISOPRODOL
     Indication: MUSCLE SPASMS
  2. CYCLOBENZAPRINE [Suspect]
     Active Substance: CYCLOBENZAPRINE
     Indication: MUSCLE SPASMS
  3. CYCLOBENZAPRINE [Suspect]
     Active Substance: CYCLOBENZAPRINE
     Indication: MUSCLE SPASMS
  4. TRAMADOL [Suspect]
     Active Substance: TRAMADOL
     Indication: PAIN
  5. CETIRIZINE [Concomitant]
     Active Substance: CETIRIZINE HYDROCHLORIDE
  6. AMITRIPTYLINE [Suspect]
     Active Substance: AMITRIPTYLINE
  7. DULOXETINE [Suspect]
     Active Substance: DULOXETINE
     Indication: DEPRESSION
  8. GABAPENTIN. [Concomitant]
     Active Substance: GABAPENTIN
  9. DULOXETINE [Suspect]
     Active Substance: DULOXETINE
     Indication: DEPRESSION
  10. AMITRIPTYLINE [Suspect]
     Active Substance: AMITRIPTYLINE
  11. TRAMADOL [Suspect]
     Active Substance: TRAMADOL
     Indication: PAIN

REACTIONS (1)
  - Serotonin syndrome [Recovering/Resolving]
